FAERS Safety Report 20763647 (Version 1)
Quarter: 2022Q2

REPORT INFORMATION
  Report Type: Report from Study
  Country: GB (occurrence: GB)
  Receive Date: 20220428
  Receipt Date: 20220428
  Transmission Date: 20220721
  Serious: Yes (Other)
  Sender: FDA-Public Use
  Company Number: GB-GLAXOSMITHKLINE-GB2022EME067239

PATIENT
  Age: 57 Year
  Sex: Female

DRUGS (2)
  1. NIRAPARIB [Suspect]
     Active Substance: NIRAPARIB
     Indication: Neoplasm malignant
     Dosage: UNK
  2. NIRAPARIB [Suspect]
     Active Substance: NIRAPARIB
     Dosage: 200 MG
     Dates: start: 20220414, end: 202204

REACTIONS (3)
  - Seizure [Unknown]
  - Cerebrovascular accident [Unknown]
  - Epilepsy [Unknown]

NARRATIVE: CASE EVENT DATE: 20201217
